FAERS Safety Report 7913835-5 (Version None)
Quarter: 2011Q4

REPORT INFORMATION
  Report Type: 
  Country: None (occurrence: None)
  Receive Date: 20111110
  Receipt Date: 20111024
  Transmission Date: 20120403
  Serious: Yes (Hospitalization)
  Sender: FDA-Public Use
  Company Number: JPI-P-017832

PATIENT
  Age: 63 Year
  Sex: Female
  Weight: 87.5442 kg

DRUGS (7)
  1. IVIG (INTRAVENOUS IMMUNOGLOBULIN) [Concomitant]
  2. XYREM [Suspect]
     Indication: SLEEP DISORDER
     Dosage: 9 GM (4.5 GM, 2 IN 1 D), ORAL, 11 GM (5.5 GM, 2 IN 1 D), ORAL, 10 GM (5 GM, 2 IN 1 D), ORAL
     Route: 048
     Dates: start: 20080619, end: 20110401
  3. XYREM [Suspect]
     Indication: INSOMNIA
     Dosage: 9 GM (4.5 GM, 2 IN 1 D), ORAL, 11 GM (5.5 GM, 2 IN 1 D), ORAL, 10 GM (5 GM, 2 IN 1 D), ORAL
     Route: 048
     Dates: start: 20080619, end: 20110401
  4. XYREM [Suspect]
     Indication: SLEEP DISORDER
     Dosage: 9 GM (4.5 GM, 2 IN 1 D), ORAL, 11 GM (5.5 GM, 2 IN 1 D), ORAL, 10 GM (5 GM, 2 IN 1 D), ORAL
     Route: 048
     Dates: start: 20110425
  5. XYREM [Suspect]
     Indication: INSOMNIA
     Dosage: 9 GM (4.5 GM, 2 IN 1 D), ORAL, 11 GM (5.5 GM, 2 IN 1 D), ORAL, 10 GM (5 GM, 2 IN 1 D), ORAL
     Route: 048
     Dates: start: 20110425
  6. XYREM [Suspect]
     Indication: SLEEP DISORDER
     Dosage: 9 GM (4.5 GM, 2 IN 1 D), ORAL, 11 GM (5.5 GM, 2 IN 1 D), ORAL, 10 GM (5 GM, 2 IN 1 D), ORAL
     Route: 048
     Dates: start: 20110101
  7. XYREM [Suspect]
     Indication: INSOMNIA
     Dosage: 9 GM (4.5 GM, 2 IN 1 D), ORAL, 11 GM (5.5 GM, 2 IN 1 D), ORAL, 10 GM (5 GM, 2 IN 1 D), ORAL
     Route: 048
     Dates: start: 20110101

REACTIONS (1)
  - MALIGNANT TUMOUR EXCISION [None]
